FAERS Safety Report 8548668-2 (Version None)
Quarter: 2012Q3

REPORT INFORMATION
  Report Type: 
  Country: None (occurrence: None)
  Receive Date: 20120730
  Receipt Date: 20120726
  Transmission Date: 20120928
  Serious: Yes (Life-Threatening, Hospitalization)
  Sender: FDA-Public Use
  Company Number: ES-COVIDIEN/TYCO HEALTHCARE/MALLINCKRODT-T201202890

PATIENT
  Sex: Male

DRUGS (1)
  1. OPTIRAY ULTRAJECT [Suspect]
     Indication: COMPUTERISED TOMOGRAM HEAD
     Dosage: 50 ML, SINGLE
     Route: 042
     Dates: start: 20120709, end: 20120709

REACTIONS (5)
  - SHOCK [None]
  - ERYTHEMA [None]
  - PRURITUS [None]
  - LOSS OF CONSCIOUSNESS [None]
  - BRONCHOSPASM [None]
